FAERS Safety Report 9641559 (Version 2)
Quarter: 2013Q4

REPORT INFORMATION
  Report Type: Spontaneous
  Country: GB (occurrence: None)
  Receive Date: 20131021
  Receipt Date: 20131129
  Transmission Date: 20140711
  Serious: Yes (Hospitalization)
  Sender: FDA-Public Use
  Company Number: 1951127

PATIENT
  Age: 39 Year
  Sex: Female

DRUGS (4)
  1. METHOTREXATE [Suspect]
     Indication: ARTHRITIS
  2. VALPROATE SODIUM/VALPROIC ACID (ERGENYL CHRONO) [Suspect]
     Indication: AFFECTIVE DISORDER
     Route: 048
  3. VALPROATE SODIUM/VALPROIC ACID (ERGENYL CHRONO) [Suspect]
     Indication: BIPOLAR DISORDER
     Route: 048
  4. VALPROIC ACID [Suspect]
     Indication: AFFECTIVE DISORDER
     Route: 048

REACTIONS (7)
  - Off label use [None]
  - Weight increased [None]
  - Psychotic disorder [None]
  - Hair growth abnormal [None]
  - Nausea [None]
  - Mouth ulceration [None]
  - Personality change [None]
